FAERS Safety Report 18316541 (Version 2)
Quarter: 2021Q2

REPORT INFORMATION
  Report Type: Spontaneous
  Country: CA (occurrence: CA)
  Receive Date: 20200927
  Receipt Date: 20210423
  Transmission Date: 20210717
  Serious: Yes (Other)
  Sender: FDA-Public Use
  Company Number: CA-ROCHE-2684098

PATIENT
  Sex: Male

DRUGS (15)
  1. MIRTAZAPINE. [Concomitant]
     Active Substance: MIRTAZAPINE
  2. IBUPROFEN. [Concomitant]
     Active Substance: IBUPROFEN
  3. METHADONE [Concomitant]
     Active Substance: METHADONE HYDROCHLORIDE
  4. PREGABALIN. [Concomitant]
     Active Substance: PREGABALIN
  5. TARCEVA [Concomitant]
     Active Substance: ERLOTINIB HYDROCHLORIDE
     Route: 048
  6. ZOPLICONE [Concomitant]
     Active Substance: ZOPICLONE
  7. BEVACIZUMAB. [Suspect]
     Active Substance: BEVACIZUMAB
     Indication: LUNG CANCER METASTATIC
     Route: 042
  8. GABAPENTIN. [Concomitant]
     Active Substance: GABAPENTIN
  9. MORPHINE [Concomitant]
     Active Substance: MORPHINE
  10. ASPIRIN [ACETYLSALICYLIC ACID] [Concomitant]
     Active Substance: ASPIRIN
  11. DEXAMETHASONE. [Concomitant]
     Active Substance: DEXAMETHASONE
  12. ERLOTINIB HYDROCHLORIDE. [Concomitant]
     Active Substance: ERLOTINIB HYDROCHLORIDE
  13. ROBAXIN [Concomitant]
     Active Substance: METHOCARBAMOL
  14. CARBOPLATIN. [Suspect]
     Active Substance: CARBOPLATIN
     Indication: LUNG NEOPLASM MALIGNANT
     Route: 065
  15. PACLITAXEL. [Suspect]
     Active Substance: PACLITAXEL
     Indication: LUNG NEOPLASM MALIGNANT
     Dosage: INTRAVENOUS LIQUID
     Route: 042

REACTIONS (15)
  - Weight bearing difficulty [Not Recovered/Not Resolved]
  - Pulmonary thrombosis [Not Recovered/Not Resolved]
  - Vomiting [Not Recovered/Not Resolved]
  - Gait disturbance [Not Recovered/Not Resolved]
  - Nausea [Not Recovered/Not Resolved]
  - Chromaturia [Not Recovered/Not Resolved]
  - Decreased appetite [Not Recovered/Not Resolved]
  - Dysgeusia [Not Recovered/Not Resolved]
  - Hypersomnia [Not Recovered/Not Resolved]
  - Hepatic enzyme increased [Not Recovered/Not Resolved]
  - Movement disorder [Not Recovered/Not Resolved]
  - Nerve injury [Not Recovered/Not Resolved]
  - Pain in extremity [Not Recovered/Not Resolved]
  - Feeling cold [Not Recovered/Not Resolved]
  - Pain [Not Recovered/Not Resolved]
